FAERS Safety Report 8966946 (Version 4)
Quarter: 2013Q1

REPORT INFORMATION
  Report Type: Spontaneous
  Country: JP (occurrence: JP)
  Receive Date: 20121214
  Receipt Date: 20130131
  Transmission Date: 20140127
  Serious: Yes (Hospitalization, Other)
  Sender: FDA-Public Use
  Company Number: JP-ABBOTT-12P-087-1020588-00

PATIENT
  Age: 55 Year
  Sex: Female

DRUGS (7)
  1. HUMIRA [Suspect]
     Indication: CROHN^S DISEASE
     Route: 058
     Dates: start: 20110316, end: 20110316
  2. HUMIRA [Suspect]
     Dates: start: 20110330, end: 20110330
  3. HUMIRA [Suspect]
     Dates: start: 20110413, end: 20121109
  4. PARENTERAL NUTRITION [Concomitant]
     Indication: CROHN^S DISEASE
     Route: 048
     Dates: start: 20080926
  5. FAMCICLOVIR [Concomitant]
     Indication: HERPES ZOSTER
     Route: 048
     Dates: start: 20110420, end: 20110427
  6. GENTAMICIN SULFATE [Concomitant]
     Indication: HERPES ZOSTER
     Dosage: QS
     Route: 061
     Dates: start: 20110420, end: 20110510
  7. IBUPROFEN PICONOL [Concomitant]
     Indication: HERPES ZOSTER
     Dosage: QS
     Route: 061
     Dates: start: 20110420, end: 20110510

REACTIONS (3)
  - Ileus [Recovered/Resolved]
  - Small intestine carcinoma [Unknown]
  - Sensation of foreign body [Unknown]
